FAERS Safety Report 5170467-2 (Version None)
Quarter: 2006Q4

REPORT INFORMATION
  Report Type: 
  Country: None (occurrence: None)
  Receive Date: 20061205
  Receipt Date: 20061120
  Transmission Date: 20070319
  Serious: Yes (Other)
  Sender: FDA-Public Use
  Company Number: 2006141675

PATIENT
  Sex: Male

DRUGS (1)
  1. XALATAN [Suspect]
     Indication: OPEN ANGLE GLAUCOMA
     Dosage: 0.005% UNIT DOSE AND TOTAL DAILY DOSE (1 IN 1 D), TOPICAL
     Route: 061

REACTIONS (4)
  - CATARACT OPERATION [None]
  - INTRAOCULAR PRESSURE INCREASED [None]
  - POST PROCEDURAL COMPLICATION [None]
  - UVEITIS [None]
